FAERS Safety Report 19955227 (Version 1)
Quarter: 2021Q4

REPORT INFORMATION
  Report Type: Report from Study
  Country: US (occurrence: US)
  Receive Date: 20211014
  Receipt Date: 20211014
  Transmission Date: 20220303
  Serious: Yes (Hospitalization, Other)
  Sender: FDA-Public Use
  Company Number: US-ACTELION-A-NJ2019-192526

PATIENT
  Age: 66 Year
  Sex: Female
  Weight: 52.15 kg

DRUGS (34)
  1. OPSUMIT [Suspect]
     Active Substance: MACITENTAN
     Indication: Pulmonary hypertension
     Dosage: 10 MG, QD
     Route: 048
     Dates: start: 201601
  2. UPTRAVI [Suspect]
     Active Substance: SELEXIPAG
     Indication: Pulmonary hypertension
     Dosage: 1000 MCG, BID
     Route: 048
     Dates: start: 20190731
  3. UPTRAVI [Suspect]
     Active Substance: SELEXIPAG
     Dosage: 1400 MCG, BID
     Route: 048
  4. UPTRAVI [Suspect]
     Active Substance: SELEXIPAG
     Dosage: 800 MCG, BID
     Route: 048
  5. UPTRAVI [Suspect]
     Active Substance: SELEXIPAG
     Dosage: 200 MCG, BID
     Route: 048
     Dates: end: 20190618
  6. UPTRAVI [Suspect]
     Active Substance: SELEXIPAG
     Dosage: 200 MCG, BID
     Route: 048
     Dates: start: 20190704
  7. UPTRAVI [Suspect]
     Active Substance: SELEXIPAG
     Dosage: 1200 MCG, BID
     Route: 048
  8. UPTRAVI [Suspect]
     Active Substance: SELEXIPAG
     Dosage: 1000 MCG AM, 1200 MCG PM
     Route: 048
  9. TYVASO [Concomitant]
     Active Substance: TREPROSTINIL
  10. SILDENAFIL [Concomitant]
     Active Substance: SILDENAFIL
  11. FUROSEMIDE [Concomitant]
     Active Substance: FUROSEMIDE
  12. SIMVASTATIN [Concomitant]
     Active Substance: SIMVASTATIN
  13. METHOTREXATE [Concomitant]
     Active Substance: METHOTREXATE
  14. PRADAXA [Concomitant]
     Active Substance: DABIGATRAN ETEXILATE MESYLATE
  15. SOTALOL [Concomitant]
     Active Substance: SOTALOL
  16. OMEPRAZOLE [Concomitant]
     Active Substance: OMEPRAZOLE
  17. GABAPENTIN [Concomitant]
     Active Substance: GABAPENTIN
  18. ADVAIR HFA [Concomitant]
     Active Substance: FLUTICASONE PROPIONATE\SALMETEROL XINAFOATE
  19. SPIRONOLACTONE [Concomitant]
     Active Substance: SPIRONOLACTONE
  20. SPIRIVA [Concomitant]
     Active Substance: TIOTROPIUM BROMIDE MONOHYDRATE
  21. RESTASIS [Concomitant]
     Active Substance: CYCLOSPORINE
  22. VENTOLIN HFA [Concomitant]
     Active Substance: ALBUTEROL SULFATE
  23. HYDROCORTISONE [Concomitant]
     Active Substance: HYDROCORTISONE
  24. BETAMETHASONE [Concomitant]
     Active Substance: BETAMETHASONE
  25. REVATIO [Concomitant]
     Active Substance: SILDENAFIL CITRATE
  26. TADALAFIL [Concomitant]
     Active Substance: TADALAFIL
  27. CLOBETASOL [Concomitant]
     Active Substance: CLOBETASOL
  28. REFRESH TEARS [Concomitant]
     Active Substance: CARBOXYMETHYLCELLULOSE SODIUM
  29. ALBUTEROL SULFATE [Concomitant]
     Active Substance: ALBUTEROL SULFATE
  30. OXYCODONE [Concomitant]
     Active Substance: OXYCODONE
  31. FOLIC ACID [Concomitant]
     Active Substance: FOLIC ACID
  32. MIRALAX [Concomitant]
     Active Substance: POLYETHYLENE GLYCOL 3350
  33. SENNA [Concomitant]
     Active Substance: SENNA LEAF\SENNOSIDES\SENNOSIDES A AND B
  34. ESTRING [Concomitant]
     Active Substance: ESTRADIOL

REACTIONS (19)
  - Herpes zoster [Unknown]
  - Hip arthroplasty [Unknown]
  - Hyperkalaemia [Recovering/Resolving]
  - Nausea [Not Recovered/Not Resolved]
  - Vomiting [Recovered/Resolved]
  - Decreased appetite [Unknown]
  - Pain in jaw [Not Recovered/Not Resolved]
  - Weight decreased [Unknown]
  - Feeling abnormal [Recovering/Resolving]
  - Diarrhoea [Recovering/Resolving]
  - Arthralgia [Not Recovered/Not Resolved]
  - Influenza like illness [Unknown]
  - Malaise [Recovering/Resolving]
  - Blood pressure decreased [Unknown]
  - Seasonal allergy [Unknown]
  - Nasal congestion [Unknown]
  - Sinus headache [Unknown]
  - Abdominal pain upper [Recovering/Resolving]
  - Memory impairment [Unknown]

NARRATIVE: CASE EVENT DATE: 20190616
